FAERS Safety Report 8448716-4 (Version None)
Quarter: 2012Q2

REPORT INFORMATION
  Report Type: 
  Country: None (occurrence: None)
  Receive Date: 20120619
  Receipt Date: 20120605
  Transmission Date: 20120825
  Serious: Yes (Other)
  Sender: FDA-Public Use
  Company Number: AU-NOVEN-12AU004775

PATIENT
  Age: 52 Year
  Sex: Female

DRUGS (2)
  1. PAROXETINE [Suspect]
     Indication: STRESS AT WORK
     Dosage: 60 MG, QD
     Route: 065
  2. UNKNOWN [Concomitant]

REACTIONS (1)
  - SUICIDE ATTEMPT [None]
